FAERS Safety Report 12913263 (Version 5)
Quarter: 2016Q4

REPORT INFORMATION
  Report Type: Spontaneous
  Country: US (occurrence: US)
  Receive Date: 20161104
  Receipt Date: 20161216
  Transmission Date: 20170207
  Serious: No
  Sender: FDA-Public Use
  Company Number: US-PFIZER INC-2016510514

PATIENT
  Age: 27 Year
  Sex: Female

DRUGS (1)
  1. FENTANYL CITRATE. [Suspect]
     Active Substance: FENTANYL CITRATE
     Indication: ANAESTHESIA
     Dosage: UNK
     Route: 042
     Dates: start: 20160811, end: 20160811

REACTIONS (2)
  - Drug ineffective [Unknown]
  - Procedural pain [Recovered/Resolved]

NARRATIVE: CASE EVENT DATE: 20160914
